FAERS Safety Report 13756975 (Version 1)
Quarter: 2017Q3

REPORT INFORMATION
  Report Type: Spontaneous
  Country: US (occurrence: US)
  Receive Date: 20170714
  Receipt Date: 20170714
  Transmission Date: 20171127
  Serious: No
  Sender: FDA-Public Use
  Company Number: US-ELI_LILLY_AND_COMPANY-US201706010375

PATIENT
  Age: 69 Year
  Sex: Male

DRUGS (2)
  1. GEMZAR [Suspect]
     Active Substance: GEMCITABINE HYDROCHLORIDE
     Indication: NON-SMALL CELL LUNG CANCER
     Dosage: UNK UNK, UNKNOWN
     Route: 065
     Dates: start: 201607
  2. CARBOPLATIN. [Concomitant]
     Active Substance: CARBOPLATIN
     Dosage: UNK UNK, UNKNOWN
     Route: 065

REACTIONS (9)
  - Leukopenia [Unknown]
  - Insomnia [Unknown]
  - Dyspnoea [Unknown]
  - Pain [Unknown]
  - Rash [Unknown]
  - Thrombocytopenia [Unknown]
  - Fatigue [Unknown]
  - Hyponatraemia [Unknown]
  - Anaemia [Unknown]

NARRATIVE: CASE EVENT DATE: 2016
